FAERS Safety Report 24046323 (Version 2)
Quarter: 2024Q3

REPORT INFORMATION
  Report Type: Report from Study
  Country: MA (occurrence: MA)
  Receive Date: 20240703
  Receipt Date: 20240718
  Transmission Date: 20241017
  Serious: Yes (Other)
  Sender: TEVA
  Company Number: MA-TEVA-VS-3215180

PATIENT

DRUGS (1)
  1. ZINC [Suspect]
     Active Substance: ZINC
     Indication: Hepato-lenticular degeneration
     Dosage: WILZIN AT A DOSE OF 75 MG DIVIDED INTO TWO DOSES (50 MG AND 25 MG) INSTEAD OF 3
     Route: 065

REACTIONS (3)
  - Haematemesis [Unknown]
  - Melaena [Unknown]
  - Product administration error [Unknown]
